FAERS Safety Report 23396506 (Version 2)
Quarter: 2024Q2

REPORT INFORMATION
  Report Type: Report from Study
  Country: US (occurrence: US)
  Receive Date: 20240112
  Receipt Date: 20240424
  Transmission Date: 20240716
  Serious: Yes (Death, Hospitalization, Other)
  Sender: FDA-Public Use
  Company Number: US-ACADIA PHARMACEUTICALS INC.-ACA-2024-PIM-000026

PATIENT
  Age: 76 Year
  Sex: Female

DRUGS (35)
  1. NUPLAZID [Suspect]
     Active Substance: PIMAVANSERIN TARTRATE
     Indication: Parkinson^s disease psychosis
     Dosage: UNK
     Route: 065
     Dates: start: 20230516, end: 20231209
  2. ASPIRIN [Concomitant]
     Active Substance: ASPIRIN
     Indication: Hemiplegia
     Dosage: 81 MILLIGRAM, QD
     Route: 048
     Dates: start: 20230213
  3. ASPIRIN [Concomitant]
     Active Substance: ASPIRIN
     Indication: Hemiparesis
  4. ATORVASTATIN CALCIUM [Concomitant]
     Active Substance: ATORVASTATIN CALCIUM
     Indication: Hyperlipidaemia
     Dosage: 40 MILLIGRAM, QD
     Route: 048
     Dates: start: 20230209
  5. BIOFREEZE [Concomitant]
     Active Substance: MENTHOL
     Indication: Arthritis
     Dosage: 4 PERCENT FOUR TIMES A DAY
     Route: 061
     Dates: start: 20231018
  6. BIOFREEZE [Concomitant]
     Active Substance: MENTHOL
     Indication: Osteoarthritis
  7. BISACODYL [Concomitant]
     Active Substance: BISACODYL
     Indication: Constipation
     Dosage: 5 MILLIGRAM, QD
     Route: 048
     Dates: start: 20230209
  8. BUPRENORPHINE [Concomitant]
     Active Substance: BUPRENORPHINE
     Indication: Pain
     Dosage: APPLY ONE PATCH ONE TIME A DAY
     Dates: start: 20230814
  9. BUSPIRONE [Concomitant]
     Active Substance: BUSPIRONE HYDROCHLORIDE
     Indication: Anxiety
     Dosage: 15 MILLIGRAM, BID
     Route: 048
     Dates: start: 20231103
  10. CELEBREX [Concomitant]
     Active Substance: CELECOXIB
     Indication: Pain
     Dosage: EVERY 24 HOURS AS NEEDED
     Route: 048
     Dates: start: 20230918
  11. CLOPIDOGREL BISULFATE [Concomitant]
     Active Substance: CLOPIDOGREL BISULFATE
     Indication: Cerebrovascular accident
     Dosage: 75 MILLIGRAM, QD
     Route: 048
     Dates: start: 20230213
  12. COLACE [Concomitant]
     Active Substance: DOCUSATE SODIUM
     Indication: Constipation
     Dosage: 100 MILLIGRAM, BID
     Route: 048
     Dates: start: 20231119
  13. CYANOCOBALAMIN [Concomitant]
     Active Substance: CYANOCOBALAMIN
     Dosage: 1000MCG/ML
     Route: 058
     Dates: start: 20220116
  14. DULOXETINE HYDROCHLORIDE [Concomitant]
     Active Substance: DULOXETINE HYDROCHLORIDE
     Indication: Major depression
     Dosage: 60 MILLIGRAM, QD
     Route: 048
     Dates: start: 20221120
  15. ENALAPRIL MALEATE [Concomitant]
     Active Substance: ENALAPRIL MALEATE
     Indication: Hypertension
     Dosage: 5 MILLIGRAM, QD
     Route: 048
     Dates: start: 20231105
  16. LOPERAMIDE HYDROCHLORIDE [Concomitant]
     Active Substance: LOPERAMIDE HYDROCHLORIDE
     Indication: Diarrhoea
     Dosage: 2 MILLIGRAM, EVERY 6 HOURS
     Route: 048
     Dates: start: 20230209
  17. NUEDEXTA [Concomitant]
     Active Substance: DEXTROMETHORPHAN HYDROBROMIDE\QUINIDINE SULFATE
     Indication: Affect lability
     Dosage: 1 CAPSULE TWO TIMES A DAY
     Route: 048
     Dates: start: 20230516
  18. NYSTATIN [Concomitant]
     Active Substance: NYSTATIN
     Indication: Fungal infection
     Dosage: 100000UNIT/GM TID
     Route: 061
     Dates: start: 20231108
  19. NYSTATIN [Concomitant]
     Active Substance: NYSTATIN
     Indication: Erythema
     Dosage: 100000 UNIT/GM, APPLY UNDER BRESTES EVERY 12 HOURS
     Route: 061
     Dates: start: 20230827
  20. OMEPRAZOLE [Concomitant]
     Active Substance: OMEPRAZOLE
     Indication: Gastrooesophageal reflux disease
     Dosage: 20 MILLIGRAM, TID
     Route: 048
     Dates: start: 20200705
  21. PEPCID AC [Concomitant]
     Active Substance: FAMOTIDINE
     Indication: Gastrooesophageal reflux disease
     Dosage: 20 MILLIGRAM, QD
     Route: 048
     Dates: start: 20231007
  22. HERBALS\PLANTAGO OVATA SEED COAT [Concomitant]
     Active Substance: HERBALS\PLANTAGO OVATA SEED COAT
     Indication: Laxative supportive care
     Dosage: GIVE 1 CAPSULE VERBAL BY MOUTH QD
     Route: 048
  23. ROPINIROLE [Concomitant]
     Active Substance: ROPINIROLE
     Indication: Parkinson^s disease
     Dosage: 1 MILLIGRAM, TID
     Dates: start: 20230209
  24. RYTARY [Concomitant]
     Active Substance: CARBIDOPA\LEVODOPA
     Indication: Parkinsonism
     Dosage: 48.75-195MG TID
     Route: 048
     Dates: start: 20231207
  25. SEROQUEL [Concomitant]
     Active Substance: QUETIAPINE FUMARATE
     Indication: Schizoaffective disorder
     Dosage: 25 MILLIGRAM
     Route: 048
     Dates: start: 20231207
  26. TYLENOL [Concomitant]
     Active Substance: ACETAMINOPHEN
     Indication: Pain
     Dosage: 325 MILLIGRAM
     Route: 048
     Dates: start: 20230209
  27. TYLENOL [Concomitant]
     Active Substance: ACETAMINOPHEN
     Dosage: 325 MILLIGRAM
     Route: 048
     Dates: start: 20230614
  28. VITAMIN D3 [Concomitant]
     Active Substance: CHOLECALCIFEROL
     Dosage: 125 MICROGRAM, QD
     Route: 048
     Dates: start: 20200530
  29. ZOFRAN [Concomitant]
     Active Substance: ONDANSETRON HYDROCHLORIDE
     Indication: Nausea
     Dosage: 4 MILLIGRAM
     Route: 048
     Dates: start: 20230209
  30. ZOFRAN [Concomitant]
     Active Substance: ONDANSETRON HYDROCHLORIDE
     Indication: Vomiting
  31. DIETARY SUPPLEMENT [Concomitant]
     Active Substance: DIETARY SUPPLEMENT
     Dosage: 90 MILLILITER, TID
     Dates: start: 20231120
  32. CLONAZEPAM [Concomitant]
     Active Substance: CLONAZEPAM
     Indication: Anxiety disorder
     Dosage: 0.5 MG TID
     Route: 048
     Dates: start: 20230731
  33. GERI LANTA [Concomitant]
     Indication: Abdominal discomfort
     Dosage: 30 MILLILITER, QD
     Route: 048
     Dates: start: 20200417
  34. GERI LANTA [Concomitant]
     Indication: Dyspepsia
  35. GERI LANTA [Concomitant]
     Indication: Diarrhoea

REACTIONS (1)
  - Death [Recovered/Resolved]

NARRATIVE: CASE EVENT DATE: 20231209
